FAERS Safety Report 4575836-7 (Version None)
Quarter: 2005Q1

REPORT INFORMATION
  Report Type: 
  Country: None (occurrence: None)
  Receive Date: 20050204
  Receipt Date: 20050121
  Transmission Date: 20050727
  Serious: Yes (Other)
  Sender: FDA-Public Use
  Company Number: 2004242626JP

PATIENT
  Age: 72 Year
  Sex: Male

DRUGS (11)
  1. AZULFIDINE EN-TABS [Suspect]
     Indication: MUSCULOSKELETAL PAIN
     Dosage: 500 MG (DAILY) ORAL
     Route: 048
     Dates: start: 20041016, end: 20041019
  2. LUVOX [Suspect]
     Indication: PAIN IN EXTREMITY
     Dosage: 50 MG (DAILY) ORAL
     Route: 048
     Dates: start: 20041016, end: 20041019
  3. CILOSTAZOL [Suspect]
     Indication: MYOCARDIAL INFARCTION
     Dosage: 20 0 MG (DAILY) ORAL
     Route: 048
  4. PREDNISONE [Suspect]
     Indication: MUSCULOSKELETAL PAIN
     Dosage: 10 MG (DAILY)ORAL
     Route: 048
  5. ACETYLSALICYLIC ACID SRT [Suspect]
     Indication: MYOCARDIAL INFARCTION
     Dosage: 100 MG (DAILY) ORAL
     Route: 048
  6. NICOANDIL (NICORANDIL) [Suspect]
     Indication: MYOCARDIAL INFARCTION
     Dosage: 15 MG DAILY ORAL
     Route: 048
  7. MAGNESIUM OXIDE (MAGNESIUM OXIDE) [Suspect]
     Indication: CONSTIPATION
     Dosage: 990 MG DAILY ORAL
     Route: 048
  8. LOXOPROFEN SODIUM( LOXOPROFEN SODIUM) [Suspect]
     Indication: PAIN IN EXTREMITY
     Dosage: ORAL
     Route: 048
  9. REBAMIPIDE (REBAMIPIDE) [Suspect]
     Indication: GASTRITIS
     Dosage: ORAL
     Route: 048
  10. SENNA LEAF (SENNA LEAF) [Suspect]
     Indication: CONSTIPATION
     Dosage: 24 MG (DAILY) ORAL
     Route: 048
  11. ZOPICLONE (ZOPICLONE) [Suspect]
     Indication: INSOMNIA
     Dosage: ORAL
     Route: 048

REACTIONS (4)
  - ANURIA [None]
  - HYPOTENSION [None]
  - OXYGEN SATURATION DECREASED [None]
  - SHOCK [None]
